FAERS Safety Report 9423671 (Version 3)
Quarter: 2013Q4

REPORT INFORMATION
  Report Type: Report from Study
  Country: US (occurrence: US)
  Receive Date: 20130727
  Receipt Date: 20131122
  Transmission Date: 20140711
  Serious: Yes (Hospitalization)
  Sender: FDA-Public Use
  Company Number: US-ROCHE-1246912

PATIENT
  Age: 72 Year
  Sex: Female
  Weight: 42.5 kg

DRUGS (26)
  1. GDC-0941 (PI3K INHIBITOR) [Suspect]
     Indication: NON-SMALL CELL LUNG CANCER
     Route: 048
     Dates: start: 20130730
  2. BEVACIZUMAB [Suspect]
     Indication: NON-SMALL CELL LUNG CANCER
     Route: 042
     Dates: start: 20130610
  3. CARBOPLATIN [Suspect]
     Indication: NON-SMALL CELL LUNG CANCER
     Route: 042
     Dates: start: 20130610
  4. PACLITAXEL [Suspect]
     Indication: NON-SMALL CELL LUNG CANCER
     Route: 042
     Dates: start: 20130610, end: 20130705
  5. SPIRIVA [Concomitant]
     Indication: COUGH
     Route: 055
     Dates: start: 20130613
  6. BENZONATATE [Concomitant]
     Indication: COUGH
     Route: 048
     Dates: start: 20130514
  7. LORAZEPAM [Concomitant]
     Indication: NAUSEA
     Route: 048
     Dates: start: 20130610
  8. LORAZEPAM [Concomitant]
     Indication: INSOMNIA
  9. ZOFRAN [Concomitant]
     Indication: VOMITING
     Route: 048
     Dates: start: 20130606
  10. ZOFRAN [Concomitant]
     Route: 042
  11. COMPAZINE [Concomitant]
     Indication: VOMITING
     Route: 048
     Dates: start: 20130610
  12. FLUTICASONE [Concomitant]
     Indication: HYPERSENSITIVITY
     Route: 055
     Dates: start: 20130415
  13. ATENOLOL [Concomitant]
     Indication: HYPERTENSION
     Route: 048
     Dates: start: 20040707
  14. AMLODIPINE [Concomitant]
     Indication: HYPERTENSION
     Route: 048
     Dates: start: 20120315
  15. PRAVACHOL [Concomitant]
     Indication: HYPERLIPIDAEMIA
     Route: 048
     Dates: start: 20120315
  16. DULERA [Concomitant]
     Dosage: DOSE: 100-5 UG.
     Route: 055
  17. PROTONIX (PANTOPRAZOLE SODIUM) [Concomitant]
     Route: 042
  18. SODIUM CHLORIDE [Concomitant]
     Route: 042
  19. ACETAMINOPHEN [Concomitant]
     Route: 048
  20. ACETAMINOPHEN [Concomitant]
     Route: 042
  21. TUMS [Concomitant]
     Route: 048
  22. MORPHINE [Concomitant]
     Route: 042
  23. ATROVENT [Concomitant]
     Indication: COUGH
     Route: 055
     Dates: start: 20130614
  24. TYLENOL [Concomitant]
     Indication: BONE PAIN
     Route: 048
     Dates: start: 1990
  25. TYLENOL [Concomitant]
     Indication: SCIATICA
  26. PLACEBO [Suspect]
     Indication: NON-SMALL CELL LUNG CANCER
     Route: 048
     Dates: start: 20130610

REACTIONS (1)
  - Pleural effusion [Recovered/Resolved]
